FAERS Safety Report 16821588 (Version 1)
Quarter: 2019Q3

REPORT INFORMATION
  Report Type: Report from Study
  Country: US (occurrence: US)
  Receive Date: 20190918
  Receipt Date: 20190918
  Transmission Date: 20191005
  Serious: Yes (Other)
  Sender: FDA-Public Use
  Company Number: US-MALLINCKRODT-T201905933

PATIENT
  Age: 0 Year
  Sex: Female
  Weight: 9 kg

DRUGS (2)
  1. REPOSITORY CORTICOTROPIN INJECTION [Suspect]
     Active Substance: CORTICOTROPIN
     Indication: INFANTILE SPASMS
     Dosage: 60 UNITS DAILY FOR TWO WEEKS
     Route: 030
     Dates: start: 20190820, end: 2019
  2. REPOSITORY CORTICOTROPIN INJECTION [Suspect]
     Active Substance: CORTICOTROPIN
     Dosage: TAPERED DOSE, UNK
     Route: 065
     Dates: start: 2019

REACTIONS (6)
  - Muscle twitching [Unknown]
  - Increased appetite [Not Recovered/Not Resolved]
  - Diarrhoea [Unknown]
  - Blood pressure increased [Unknown]
  - Heart rate irregular [Unknown]
  - Irritability [Not Recovered/Not Resolved]

NARRATIVE: CASE EVENT DATE: 2019
